FAERS Safety Report 5534600-2 (Version None)
Quarter: 2007Q4

REPORT INFORMATION
  Report Type: 
  Country: None (occurrence: None)
  Receive Date: 20071204
  Receipt Date: 20071204
  Transmission Date: 20080405
  Serious: Yes (Other)
  Sender: FDA-Public Use
  Company Number: None

PATIENT
  Age: 50 Year
  Sex: Female
  Weight: 61.2356 kg

DRUGS (2)
  1. EFFEXOR XR [Suspect]
     Indication: DEPRESSION
     Dosage: 1 X DAY PO
     Route: 048
     Dates: start: 20070303, end: 20070908
  2. EFFEXOR XR [Suspect]
     Indication: DEPRESSION
     Dosage: 2 X DAY PO
     Route: 048
     Dates: start: 20070909, end: 20071130

REACTIONS (6)
  - CHILLS [None]
  - HALLUCINATION [None]
  - PHARMACEUTICAL PRODUCT COMPLAINT [None]
  - THINKING ABNORMAL [None]
  - TREMOR [None]
  - WITHDRAWAL SYNDROME [None]
